FAERS Safety Report 4885880-8 (Version None)
Quarter: 2006Q1

REPORT INFORMATION
  Report Type: 
  Country: None (occurrence: None)
  Receive Date: 20060120
  Receipt Date: 20060109
  Transmission Date: 20060701
  Serious: Yes (Hospitalization)
  Sender: FDA-Public Use
  Company Number: SE-AMGEN-UK164045

PATIENT
  Sex: Female

DRUGS (8)
  1. NEUPOGEN [Suspect]
     Indication: CHEMOTHERAPY
     Dates: start: 20050731, end: 20050804
  2. ETOPOSIDE [Concomitant]
  3. METHOTREXATE [Concomitant]
  4. HOLOXAN [Concomitant]
  5. CALCICHEW [Concomitant]
  6. RITUXIMAB [Concomitant]
  7. OMEPRAZOLE [Concomitant]
  8. MITOGUAZONE [Concomitant]

REACTIONS (5)
  - BACK PAIN [None]
  - FLANK PAIN [None]
  - GROIN PAIN [None]
  - PAIN [None]
  - PALPITATIONS [None]
